FAERS Safety Report 21458404 (Version 4)
Quarter: 2025Q2

REPORT INFORMATION
  Report Type: Spontaneous
  Country: FR (occurrence: FR)
  Receive Date: 20221014
  Receipt Date: 20250616
  Transmission Date: 20250717
  Serious: Yes (Hospitalization, Other)
  Sender: PFIZER
  Company Number: None

PATIENT
  Age: 57 Year
  Sex: Male
  Weight: 84 kg

DRUGS (6)
  1. XALKORI [Suspect]
     Active Substance: CRIZOTINIB
     Indication: Non-small cell lung cancer recurrent
     Dosage: 200 MG, 1X/DAY
     Route: 048
     Dates: start: 20190206
  2. XALKORI [Suspect]
     Active Substance: CRIZOTINIB
     Indication: Renal cancer
  3. TINZAPARIN SODIUM [Concomitant]
     Active Substance: TINZAPARIN SODIUM
  4. ALPRAZOLAM [Concomitant]
     Active Substance: ALPRAZOLAM
  5. CANDESARTAN CILEXETIL [Concomitant]
     Active Substance: CANDESARTAN CILEXETIL
  6. SKENAN [Concomitant]
     Active Substance: MORPHINE SULFATE

REACTIONS (7)
  - Cryptococcal cutaneous infection [Recovering/Resolving]
  - Lymphopenia [Recovering/Resolving]
  - Condition aggravated [Recovering/Resolving]
  - Limb injury [Unknown]
  - Erysipelas [Unknown]
  - Oedema peripheral [Unknown]
  - Off label use [Unknown]

NARRATIVE: CASE EVENT DATE: 20190206
